FAERS Safety Report 16978156 (Version 3)
Quarter: 2020Q2

REPORT INFORMATION
  Report Type: Spontaneous
  Country: PT (occurrence: PT)
  Receive Date: 20191031
  Receipt Date: 20200529
  Transmission Date: 20200713
  Serious: Yes (Other)
  Sender: FDA-Public Use
  Company Number: PT-ACCORD-159259

PATIENT
  Age: 55 Year
  Sex: Female
  Weight: 50 kg

DRUGS (2)
  1. CAPECITABINE ACCORD [Suspect]
     Active Substance: CAPECITABINE
     Indication: GALLBLADDER ADENOCARCINOMA
     Dosage: 1800 MG EVERY 12 HOURS
     Route: 048
  2. DILTIAZEM. [Concomitant]
     Active Substance: DILTIAZEM
     Dosage: 60 MG, NO MEDICATION ERROR OCCURRED

REACTIONS (8)
  - Hypomagnesaemia [Recovered/Resolved]
  - Blood pressure abnormal [Recovered/Resolved]
  - Diarrhoea [Recovered/Resolved]
  - Oesophageal discomfort [Recovered/Resolved]
  - Dizziness [Unknown]
  - Chest discomfort [Recovered/Resolved]
  - Off label use [Unknown]
  - Hypokalaemia [Recovered/Resolved]

NARRATIVE: CASE EVENT DATE: 20190920
